FAERS Safety Report 9017094 (Version 1)
Quarter: 2013Q1

REPORT INFORMATION
  Report Type: Spontaneous
  Country: AU (occurrence: AU)
  Receive Date: 20130117
  Receipt Date: 20130117
  Transmission Date: 20140127
  Serious: Yes (Hospitalization)
  Sender: FDA-Public Use
  Company Number: AU-GALDERMA-AU13000096

PATIENT
  Age: 14 Year
  Sex: Male

DRUGS (1)
  1. EPIDUO [Suspect]
     Indication: ACNE
     Dosage: 0.1% / 2.5%
     Route: 061

REACTIONS (6)
  - Blister [Unknown]
  - Expressive language disorder [Unknown]
  - Eating disorder [Unknown]
  - Dyspnoea [Unknown]
  - Chemical injury [Unknown]
  - Swelling face [Unknown]
